FAERS Safety Report 6164332-1 (Version None)
Quarter: 2009Q2

REPORT INFORMATION
  Report Type: 
  Country: None (occurrence: None)
  Receive Date: 20090422
  Receipt Date: 20090316
  Transmission Date: 20091009
  Serious: Yes (Hospitalization, Other)
  Sender: FDA-Public Use
  Company Number: TR-PFIZER INC-2009183332

PATIENT

DRUGS (1)
  1. METHYLPREDNISOLONE AND METHYLPREDNISOLONE ACETATE AND METHYLPREDNISOLO [Suspect]
     Indication: HAEMOLYTIC ANAEMIA
     Dosage: 1MG/KG/DAY FOR 3 DAYS
     Route: 042
     Dates: start: 20040101, end: 20040101

REACTIONS (2)
  - LOEFFLER'S SYNDROME [None]
  - STRONGYLOIDIASIS [None]
